FAERS Safety Report 6315648-7 (Version None)
Quarter: 2009Q3

REPORT INFORMATION
  Report Type: 
  Country: None (occurrence: None)
  Receive Date: 20090819
  Receipt Date: 20090812
  Transmission Date: 20100115
  Serious: Yes (Other)
  Sender: FDA-Public Use
  Company Number: CA-JNJCH-2009020604

PATIENT
  Sex: Male

DRUGS (1)
  1. LUBRIDERM UNSCENTED [Suspect]
     Indication: DRY SKIN
     Dosage: TEXT:UNSPECIFIED
     Route: 061
     Dates: start: 20090729, end: 20090729

REACTIONS (5)
  - ASTHMA [None]
  - CHEST DISCOMFORT [None]
  - MIGRAINE [None]
  - PRODUCT QUALITY ISSUE [None]
  - WHEEZING [None]
